FAERS Safety Report 15662563 (Version 2)
Quarter: 2018Q4

REPORT INFORMATION
  Report Type: Spontaneous
  Country: US (occurrence: US)
  Receive Date: 20181127
  Receipt Date: 20181130
  Transmission Date: 20190205
  Serious: No
  Sender: FDA-Public Use
  Company Number: US-SHIRE-US201846057

PATIENT
  Age: 19 Year
  Sex: Female

DRUGS (4)
  1. VYVANSE [Suspect]
     Active Substance: LISDEXAMFETAMINE DIMESYLATE
     Dosage: 30 MG, 1X/DAY:QD
     Route: 048
     Dates: start: 201710
  2. VYVANSE [Suspect]
     Active Substance: LISDEXAMFETAMINE DIMESYLATE
     Dosage: 50 MG, UNK
     Route: 065
  3. VYVANSE [Suspect]
     Active Substance: LISDEXAMFETAMINE DIMESYLATE
     Indication: PRODUCT USED FOR UNKNOWN INDICATION
     Dosage: 50 MG, 1X/DAY:QD
     Route: 048
     Dates: start: 201706
  4. ADDERALL XR [Concomitant]
     Active Substance: AMPHETAMINE ASPARTATE\AMPHETAMINE SULFATE\DEXTROAMPHETAMINE SACCHARATE\DEXTROAMPHETAMINE SULFATE
     Indication: PRODUCT USED FOR UNKNOWN INDICATION

REACTIONS (2)
  - Product physical issue [Unknown]
  - Prescribed overdose [Not Recovered/Not Resolved]

NARRATIVE: CASE EVENT DATE: 201710
